FAERS Safety Report 16470289 (Version 2)
Quarter: 2019Q3

REPORT INFORMATION
  Report Type: Report from Study
  Country: US (occurrence: US)
  Receive Date: 20190624
  Receipt Date: 20190701
  Transmission Date: 20191004
  Serious: No
  Sender: FDA-Public Use
  Company Number: US-BEH-2019103244

PATIENT
  Age: 57 Year
  Sex: Female
  Weight: 59.86 kg

DRUGS (2)
  1. HIZENTRA [Suspect]
     Active Substance: HUMAN IMMUNOGLOBULIN G
     Indication: PRIMARY IMMUNODEFICIENCY SYNDROME
     Dosage: 4 GRAM, QW
     Route: 058
     Dates: start: 20190525, end: 20190608
  2. HIZENTRA [Suspect]
     Active Substance: HUMAN IMMUNOGLOBULIN G
     Dosage: UNK
     Route: 058

REACTIONS (3)
  - Infusion site erythema [Recovered/Resolved]
  - Infusion site haemorrhage [Recovered/Resolved]
  - Infusion site warmth [Recovered/Resolved]

NARRATIVE: CASE EVENT DATE: 20190525
